FAERS Safety Report 6521982-8 (Version None)
Quarter: 2009Q4

REPORT INFORMATION
  Report Type: 
  Country: None (occurrence: None)
  Receive Date: 20091230
  Receipt Date: 20091223
  Transmission Date: 20100525
  Serious: Yes (Hospitalization)
  Sender: FDA-Public Use
  Company Number: NL-TEVA-218986ISR

PATIENT
  Sex: Female

DRUGS (3)
  1. MINOCYCLINE [Suspect]
     Indication: ACNE
     Dates: start: 20081201, end: 20090228
  2. FOCETRIA INFLUENZA VACCINE [Concomitant]
     Indication: PROPHYLAXIS
     Dates: start: 20091116
  3. CYPROTERONE ACETATE W/ETHINYLESTRADIOL [Concomitant]
     Dosage: 1 DOSAGE FORM EVERY 21 DAYS OUT OF 28 DAYS
     Dates: start: 20070101

REACTIONS (2)
  - THROMBOCYTOPENIA [None]
  - THROMBOCYTOPENIC PURPURA [None]
